FAERS Safety Report 9123109 (Version 3)
Quarter: 2013Q2

REPORT INFORMATION
  Report Type: Spontaneous
  Country: DE (occurrence: DE)
  Receive Date: 20130227
  Receipt Date: 20130402
  Transmission Date: 20140414
  Serious: Yes (Other)
  Sender: FDA-Public Use
  Company Number: DE-JNJFOC-20121105246

PATIENT
  Age: 52 Year
  Sex: Male
  Weight: 80 kg

DRUGS (11)
  1. PALEXIA RETARD [Suspect]
     Indication: PAIN
     Route: 048
     Dates: start: 20120912
  2. SEVREDOL [Concomitant]
     Route: 048
     Dates: start: 20120912
  3. SEVREDOL [Concomitant]
     Route: 048
  4. NOVAMINSULFON [Concomitant]
     Route: 048
     Dates: start: 20120912
  5. TAVOR [Concomitant]
     Indication: RESTLESSNESS
     Route: 048
     Dates: start: 20120912
  6. JODTHYROX [Concomitant]
     Route: 048
  7. ATOSIL [Concomitant]
     Route: 048
  8. ATOSIL [Concomitant]
     Route: 048
     Dates: start: 20120912, end: 201211
  9. CLEXANE [Concomitant]
     Indication: THROMBOSIS
     Route: 058
     Dates: start: 20120912, end: 20121021
  10. METAMIZOL [Concomitant]
     Route: 065
  11. PANTOPRAZOL [Concomitant]
     Route: 065

REACTIONS (6)
  - Transaminases increased [Not Recovered/Not Resolved]
  - Gamma-glutamyltransferase increased [Recovering/Resolving]
  - Blood alkaline phosphatase increased [Recovering/Resolving]
  - Alanine aminotransferase increased [Recovering/Resolving]
  - Aspartate aminotransferase increased [Recovering/Resolving]
  - Lipase increased [Unknown]
